FAERS Safety Report 15943778 (Version 1)
Quarter: 2019Q1

REPORT INFORMATION
  Report Type: Spontaneous
  Country: GB (occurrence: GB)
  Receive Date: 20190210
  Receipt Date: 20190210
  Transmission Date: 20190417
  Serious: Yes (Hospitalization)
  Sender: FDA-Public Use
  Company Number: PHHY2019GB027760

PATIENT
  Age: 64 Year
  Sex: Female

DRUGS (12)
  1. PERTUZUMAB. [Suspect]
     Active Substance: PERTUZUMAB
     Dosage: 420 MG, Q3W (CYCLE 5)
     Route: 042
     Dates: start: 20161026
  2. ADCAL D3 [Concomitant]
     Active Substance: CALCIUM CARBONATE\CHOLECALCIFEROL
     Indication: PRODUCT USED FOR UNKNOWN INDICATION
     Route: 048
  3. DOCETAXEL. [Suspect]
     Active Substance: DOCETAXEL
     Indication: BREAST CANCER
     Dosage: 75 MG, Q3W (CYCLIC 7)
     Route: 042
     Dates: start: 20160706, end: 20161026
  4. DOCETAXEL. [Suspect]
     Active Substance: DOCETAXEL
     Dosage: 100 MG, Q3W (CYCLE 1)
     Route: 042
     Dates: start: 20160615, end: 20160615
  5. TRASTUZUMAB. [Suspect]
     Active Substance: TRASTUZUMAB
     Dosage: 399 MG, Q3W (CYCLE 1)
     Route: 042
     Dates: start: 20161026
  6. PERTUZUMAB. [Suspect]
     Active Substance: PERTUZUMAB
     Indication: BREAST CANCER
     Dosage: 420 MG, Q3W
     Route: 042
     Dates: start: 20160615
  7. PERTUZUMAB. [Suspect]
     Active Substance: PERTUZUMAB
     Dosage: 840 MG, Q3W (CYCLE 1)
     Route: 042
     Dates: start: 20160523
  8. TRASTUZUMAB. [Suspect]
     Active Substance: TRASTUZUMAB
     Indication: BREAST CANCER
     Dosage: 399 MG, Q3W (CYCLE 5)
     Route: 042
     Dates: start: 20160615
  9. TRASTUZUMAB. [Suspect]
     Active Substance: TRASTUZUMAB
     Dosage: 378 MG, Q3W
     Route: 042
     Dates: start: 20161116
  10. TRASTUZUMAB. [Suspect]
     Active Substance: TRASTUZUMAB
     Dosage: 525 MG, Q3W (CYCLE 1)
     Route: 042
     Dates: start: 20160524, end: 20160524
  11. DENOSUMAB [Concomitant]
     Active Substance: DENOSUMAB
     Indication: METASTASES TO BONE
     Route: 042
  12. DOCETAXEL. [Suspect]
     Active Substance: DOCETAXEL
     Dosage: 130 MG, Q3W (CYCLE 1)
     Route: 042
     Dates: start: 20160524, end: 20160524

REACTIONS (1)
  - Sepsis [Recovered/Resolved]

NARRATIVE: CASE EVENT DATE: 20181127
